FAERS Safety Report 26135351 (Version 1)
Quarter: 2025Q4

REPORT INFORMATION
  Report Type: Report from Study
  Country: PE (occurrence: PE)
  Receive Date: 20251209
  Receipt Date: 20251209
  Transmission Date: 20260117
  Serious: Yes (Other)
  Sender: ROCHE
  Company Number: PE-ROCHE-10000276246

PATIENT
  Age: 68 Year
  Sex: Male

DRUGS (8)
  1. ACTEMRA [Suspect]
     Active Substance: TOCILIZUMAB
     Indication: Rheumatoid arthritis
     Dosage: FORM STRENGTH: 162MG/0.9ML?1 BOX - 24 AMPOULES?1 AMPOULE WEEKLY
     Route: 058
  2. Calcium Citrate 1500 mg [Concomitant]
     Indication: Nutritional supplementation
     Dosage: 1 TABLET IN THE MORNING; 1 TABLET AT BREAKFAST?1 UNIT-EACH 24 HOURS-30 DAYS -QUANTITY: 30
     Route: 048
  3. Vitamin D3 800 IU Tablet [Concomitant]
     Dosage: 1 TABLET IN THE MORNING; 1 TABLET AT BREAKFAST?1 UNIT-EACH 24 HOURS-30 DAYS-QUANTITY: 30
     Route: 048
  4. Methylprednisolone 16 mg, Tablet [Concomitant]
     Dosage: 1/4 TABLET IN THE MORNING?4 MG-EACH 24 HOURS-30 DAYS-QUANTITY:8
     Route: 048
  5. MYCOPHENOLATE MOFETIL [Concomitant]
     Active Substance: MYCOPHENOLATE MOFETIL
     Dosage: 500 MG-EACH 6 HOURS-30 DAYS-QUANTITY:120
     Route: 048
  6. MYCOPHENOLATE MOFETIL [Concomitant]
     Active Substance: MYCOPHENOLATE MOFETIL
     Route: 048
  7. MYCOPHENOLATE MOFETIL [Concomitant]
     Active Substance: MYCOPHENOLATE MOFETIL
     Route: 048
  8. KETOPROFEN [Concomitant]
     Active Substance: KETOPROFEN
     Indication: Pain
     Dosage: 2.5% GEL TUBE
     Route: 061

REACTIONS (4)
  - Bone disorder [Unknown]
  - Diarrhoea [Unknown]
  - Interstitial lung disease [Unknown]
  - COVID-19 [Unknown]
